FAERS Safety Report 6408204-3 (Version None)
Quarter: 2009Q4

REPORT INFORMATION
  Report Type: 
  Country: None (occurrence: None)
  Receive Date: 20091021
  Receipt Date: 20091012
  Transmission Date: 20100525
  Serious: Yes (Hospitalization)
  Sender: FDA-Public Use
  Company Number: HK-ROCHE-662547

PATIENT
  Age: 6 Month
  Sex: Male

DRUGS (1)
  1. TAMIFLU [Suspect]
     Dosage: STRENGTH : 12 MG/ML.
     Route: 048
     Dates: start: 20090918, end: 20090921

REACTIONS (3)
  - INFECTION [None]
  - NEUTROPENIA [None]
  - TONGUE ULCERATION [None]
